FAERS Safety Report 4869032-3 (Version None)
Quarter: 2005Q4

REPORT INFORMATION
  Report Type: 
  Country: None (occurrence: None)
  Receive Date: 20051223
  Receipt Date: 20051221
  Transmission Date: 20060501
  Serious: Yes (Hospitalization)
  Sender: FDA-Public Use
  Company Number: 2005-04905

PATIENT
  Age: 44 Year
  Sex: Male

DRUGS (8)
  1. ALPRAZOLAM [Suspect]
     Indication: DRUG USE FOR UNKNOWN INDICATION
     Dosage: 2.4 MG, DAILY, ORAL
     Route: 048
  2. TRIAZOLAM [Suspect]
     Indication: DRUG USE FOR UNKNOWN INDICATION
     Dosage: 0.5 MG, DAILY, ORAL
     Route: 048
  3. ESTAZOLAM [Suspect]
     Indication: INSOMNIA
     Dosage: 2 MG, DAILY, ORAL
     Route: 048
  4. ETIZOLAM            (ETIZOLAM) [Suspect]
     Indication: DRUG USE FOR UNKNOWN INDICATION
     Dosage: 1.5 MG, DAILY, ORAL
     Route: 048
  5. BROTIZOLAM          (BROTIZOLAM) [Suspect]
     Indication: DRUG USE FOR UNKNOWN INDICATION
     Dosage: 0.25 MG, DAILY, ORAL
     Route: 048
  6. FLURAZEPAM [Suspect]
     Indication: INSOMNIA
     Dosage: 2 MG, DAILY
  7. ZOLPIDEM TARTRATE [Suspect]
     Indication: DRUG USE FOR UNKNOWN INDICATION
     Dosage: 10 MG, DAILY, ORAL
     Route: 048
  8. ALCOHOL (ETHANOL) [Suspect]
     Dosage: 350-500 ML, QHS, ORAL
     Route: 048

REACTIONS (4)
  - DELIRIUM [None]
  - DRUG WITHDRAWAL SYNDROME [None]
  - FATIGUE [None]
  - INCORRECT DOSE ADMINISTERED [None]
